FAERS Safety Report 25072063 (Version 1)
Quarter: 2025Q1

REPORT INFORMATION
  Report Type: Spontaneous
  Country: US (occurrence: US)
  Receive Date: 20250313
  Receipt Date: 20250313
  Transmission Date: 20250408
  Serious: No
  Sender: AMGEN
  Company Number: US-AMGEN-USASP2025046521

PATIENT
  Age: 30 Year
  Sex: Female

DRUGS (4)
  1. REPATHA [Suspect]
     Active Substance: EVOLOCUMAB
     Indication: Blood cholesterol abnormal
     Dosage: 140 MILLIGRAM PER MILLILITRE, Q2WK
     Route: 058
     Dates: start: 20250304
  2. FAMOTIDINE [Concomitant]
     Active Substance: FAMOTIDINE
     Indication: Product used for unknown indication
     Route: 058
  3. VITAMINS [Concomitant]
     Active Substance: VITAMINS
  4. HYPOCHLOROUS ACID [Concomitant]
     Active Substance: HYPOCHLOROUS ACID

REACTIONS (2)
  - Eye haemorrhage [Unknown]
  - Tinnitus [Recovering/Resolving]
